FAERS Safety Report 23914365 (Version 1)
Quarter: 2024Q2

REPORT INFORMATION
  Report Type: Spontaneous
  Country: DE (occurrence: DE)
  Receive Date: 20240529
  Receipt Date: 20240529
  Transmission Date: 20240716
  Serious: Yes (Hospitalization)
  Sender: FDA-Public Use
  Company Number: DE-MYLANLABS-2024M1048176

PATIENT
  Age: 61 Year
  Sex: Male

DRUGS (2)
  1. AMIODARONE [Suspect]
     Active Substance: AMIODARONE
     Indication: Ventricular tachycardia
     Dosage: UNK, INITIAL DOSE NOT STATED
     Route: 065
  2. AMIODARONE [Suspect]
     Active Substance: AMIODARONE
     Dosage: UNK, DOSE INCREASED LATER
     Route: 065

REACTIONS (1)
  - Drug ineffective [Unknown]
